FAERS Safety Report 7040513-X (Version None)
Quarter: 2010Q4

REPORT INFORMATION
  Report Type: 
  Country: None (occurrence: None)
  Receive Date: 20101008
  Receipt Date: 20101008
  Transmission Date: 20110411
  Serious: Yes (Hospitalization, Disabling)
  Sender: FDA-Public Use
  Company Number: None

PATIENT
  Sex: Female
  Weight: 61.6892 kg

DRUGS (2)
  1. LEVAQUIN [Suspect]
     Indication: BACTERIAL INFECTION
     Dosage: 500 MG 1 DAILY - 10 DAYS
     Dates: start: 20100407
  2. LEVAQUIN [Suspect]
     Indication: VIRAL INFECTION
     Dosage: 500 MG 1 DAILY - 10 DAYS
     Dates: start: 20100407

REACTIONS (1)
  - ROTATOR CUFF SYNDROME [None]
